FAERS Safety Report 20764781 (Version 3)
Quarter: 2022Q4

REPORT INFORMATION
  Report Type: Spontaneous
  Country: US (occurrence: US)
  Receive Date: 20220428
  Receipt Date: 20221116
  Transmission Date: 20230113
  Serious: No
  Sender: FDA-Public Use
  Company Number: US-NOVARTISTESTPH-NVSC2022US098716

PATIENT
  Sex: Female

DRUGS (2)
  1. TRAVOPROST [Suspect]
     Active Substance: TRAVOPROST
     Indication: Product used for unknown indication
     Dosage: 0.004 % (5 ML)
     Route: 065
  2. TRAVOPROST [Suspect]
     Active Substance: TRAVOPROST
     Dosage: 0.004 % DAILY
     Route: 065

REACTIONS (1)
  - Eye pruritus [Unknown]
